FAERS Safety Report 8875449 (Version 1)
Quarter: 2012Q4

REPORT INFORMATION
  Report Type: 
  Country: SE (occurrence: SE)
  Receive Date: 20121029
  Receipt Date: 20121029
  Transmission Date: 20130627
  Serious: Yes (Hospitalization)
  Sender: FDA-Public Use
  Company Number: SE-009507513-1210SWE011559

PATIENT
  Age: 69 Year
  Sex: Female

DRUGS (7)
  1. FOSAMAX [Suspect]
     Dosage: 70 mg, qw
     Route: 048
     Dates: start: 2004, end: 2006
  2. ALENDRONATE SODIUM [Suspect]
     Dosage: UNK, qw
     Dates: start: 20061108, end: 20120823
  3. METHOTREXATE [Concomitant]
  4. TRAMADOL HYDROCHLORIDE [Concomitant]
  5. BRICANYL [Concomitant]
  6. VAGIFEM [Concomitant]
  7. TRYPTIZOL [Concomitant]

REACTIONS (1)
  - Pathological fracture [Not Recovered/Not Resolved]
